FAERS Safety Report 6371442-2 (Version None)
Quarter: 2009Q3

REPORT INFORMATION
  Report Type: 
  Country: None (occurrence: None)
  Receive Date: 20090923
  Receipt Date: 20070710
  Transmission Date: 20100115
  Serious: Yes (Hospitalization, Other)
  Sender: FDA-Public Use
  Company Number: US-ASTRAZENECA-2007UW12116

PATIENT
  Age: 24719 Day
  Sex: Male
  Weight: 103.3 kg

DRUGS (4)
  1. SEROQUEL [Suspect]
     Indication: DEPRESSION
     Route: 048
     Dates: start: 20040401, end: 20060101
  2. SEROQUEL [Suspect]
     Dosage: 25-225 MG
     Route: 048
     Dates: start: 20050410
  3. NOVOLOG [Concomitant]
     Dosage: 5-10 UNITS
     Dates: start: 20050410
  4. XANAX [Concomitant]
     Dates: start: 20060903

REACTIONS (5)
  - DIABETES MELLITUS [None]
  - DIABETES MELLITUS INADEQUATE CONTROL [None]
  - DIABETIC KETOACIDOSIS [None]
  - TYPE 1 DIABETES MELLITUS [None]
  - TYPE 2 DIABETES MELLITUS [None]
